FAERS Safety Report 19301280 (Version 2)
Quarter: 2021Q2

REPORT INFORMATION
  Report Type: Report from Study
  Country: US (occurrence: US)
  Receive Date: 20210525
  Receipt Date: 20210527
  Transmission Date: 20210717
  Serious: Yes (Other)
  Sender: FDA-Public Use
  Company Number: US-ASTRAZENECA-2021A448021

PATIENT
  Sex: Male
  Weight: 81.6 kg

DRUGS (1)
  1. BYDUREON BCISE [Suspect]
     Active Substance: EXENATIDE
     Indication: DIABETES MELLITUS
     Route: 065

REACTIONS (7)
  - Ageusia [Unknown]
  - Taste disorder [Unknown]
  - Throat cancer [Unknown]
  - Cognitive disorder [Unknown]
  - Weight decreased [Unknown]
  - Speech disorder [Unknown]
  - Ill-defined disorder [Unknown]
